FAERS Safety Report 4732949-4 (Version None)
Quarter: 2005Q3

REPORT INFORMATION
  Report Type: 
  Country: None (occurrence: None)
  Receive Date: 20050803
  Receipt Date: 20050705
  Transmission Date: 20060218
  Serious: No
  Sender: FDA-Public Use
  Company Number: US-GLAXOSMITHKLINE-A0564947A

PATIENT
  Age: 52 Year

DRUGS (3)
  1. AVANDAMET [Suspect]
     Route: 048
     Dates: start: 20040601
  2. LANIX [Concomitant]
     Route: 065
  3. HYDROCHLOROTHIAZIDE [Concomitant]

REACTIONS (1)
  - CHEST PAIN [None]
